FAERS Safety Report 13881179 (Version 1)
Quarter: 2017Q3

REPORT INFORMATION
  Report Type: Spontaneous
  Country: DE (occurrence: DE)
  Receive Date: 20170818
  Receipt Date: 20170818
  Transmission Date: 20171127
  Serious: Yes (Hospitalization, Other)
  Sender: FDA-Public Use
  Company Number: DE-TEVA-796339GER

PATIENT
  Sex: Female

DRUGS (1)
  1. COTRIM FORTE-RATIOPHARM 960MG TABLETTEN [Suspect]
     Active Substance: SULFAMETHOXAZOLE\TRIMETHOPRIM
     Indication: CYSTITIS
     Route: 048
     Dates: start: 20170504

REACTIONS (14)
  - Nail disorder [Unknown]
  - Exfoliative rash [Unknown]
  - Formication [Unknown]
  - Headache [Unknown]
  - Blood count abnormal [Unknown]
  - Alopecia [Unknown]
  - Peripheral swelling [Unknown]
  - Rash [Unknown]
  - Erythema [Unknown]
  - Pruritus [Unknown]
  - Laceration [Unknown]
  - Rash pustular [Unknown]
  - Dermatitis [Unknown]
  - Chills [Unknown]

NARRATIVE: CASE EVENT DATE: 2017
